FAERS Safety Report 8955557 (Version 1)
Quarter: 2012Q4

REPORT INFORMATION
  Report Type: 
  Country: US (occurrence: US)
  Receive Date: 20121207
  Receipt Date: 20121207
  Transmission Date: 20130627
  Serious: No
  Sender: FDA-Public Use
  Company Number: US-PFIZER INC-2012305054

PATIENT
  Sex: Male

DRUGS (2)
  1. VIAGRA [Suspect]
     Dosage: UNK
  2. VIAGRA [Suspect]
     Dosage: 50 mg, UNK

REACTIONS (5)
  - Erythema [Unknown]
  - Ocular hyperaemia [Unknown]
  - Malaise [Unknown]
  - Feeling hot [Unknown]
  - Drug ineffective [Unknown]
